FAERS Safety Report 8579740-9 (Version None)
Quarter: 2012Q3

REPORT INFORMATION
  Report Type: 
  Country: None (occurrence: None)
  Receive Date: 20120808
  Receipt Date: 20120801
  Transmission Date: 20120928
  Serious: Yes (Other)
  Sender: FDA-Public Use
  Company Number: PHEH2012US013242

PATIENT
  Sex: Female

DRUGS (7)
  1. ATIVAN [Concomitant]
  2. AFINITOR [Suspect]
     Indication: RENAL CELL CARCINOMA
     Dosage: 10 MG, QD
     Route: 048
     Dates: start: 20120606
  3. NEXAVAR [Concomitant]
  4. ARIMIDEX [Concomitant]
  5. CITALOPRAM HYDROBROMIDE [Concomitant]
  6. METOPROLOL TARTRATE [Concomitant]
     Dosage: 25 MG, UNK
  7. IMODIUM [Concomitant]

REACTIONS (16)
  - DIARRHOEA [None]
  - CONCOMITANT DISEASE AGGRAVATED [None]
  - STOMATITIS [None]
  - DYSGEUSIA [None]
  - ASTHENIA [None]
  - DECREASED APPETITE [None]
  - DRY MOUTH [None]
  - CENTRAL NERVOUS SYSTEM LESION [None]
  - NAUSEA [None]
  - PYREXIA [None]
  - RASH [None]
  - TRIGGER FINGER [None]
  - ORAL MUCOSAL BLISTERING [None]
  - FATIGUE [None]
  - WEIGHT DECREASED [None]
  - HEADACHE [None]
